FAERS Safety Report 4927714-9 (Version None)
Quarter: 2006Q1

REPORT INFORMATION
  Report Type: 
  Country: None (occurrence: None)
  Receive Date: 20060228
  Receipt Date: 20050414
  Transmission Date: 20060701
  Serious: Yes (Hospitalization)
  Sender: FDA-Public Use
  Company Number: US-MERCK-0504USA02790

PATIENT
  Age: 35 Year
  Sex: Female
  Weight: 64 kg

DRUGS (1)
  1. VIOXX [Suspect]
     Indication: HAEMORRHAGE
     Route: 048

REACTIONS (4)
  - DYSPNOEA [None]
  - PALPITATIONS [None]
  - POLYTRAUMATISM [None]
  - THROMBOSIS [None]
